FAERS Safety Report 26104889 (Version 1)
Quarter: 2025Q4

REPORT INFORMATION
  Report Type: Spontaneous
  Country: TN (occurrence: TN)
  Receive Date: 20251130
  Receipt Date: 20251130
  Transmission Date: 20260117
  Serious: Yes (Other)
  Sender: ALKEM
  Company Number: TN-ALKEM LABORATORIES LIMITED-TN-ALKEM-2025-10082

PATIENT
  Age: 25 Year
  Sex: Male

DRUGS (9)
  1. TACROLIMUS [Interacting]
     Active Substance: TACROLIMUS
     Indication: Immunosuppressant drug therapy
     Dosage: 6 MG/DAY
     Route: 065
     Dates: start: 20101125
  2. TACROLIMUS [Interacting]
     Active Substance: TACROLIMUS
     Dosage: 6 MG/DAY
     Route: 065
     Dates: start: 20110505
  3. TACROLIMUS [Interacting]
     Active Substance: TACROLIMUS
     Dosage: 5 MG/DAY
     Route: 065
     Dates: start: 20110510
  4. TACROLIMUS [Interacting]
     Active Substance: TACROLIMUS
     Dosage: 5 MG/DAY
     Route: 065
     Dates: start: 20110512
  5. TACROLIMUS [Interacting]
     Active Substance: TACROLIMUS
     Dosage: 7 MG/DAY
     Route: 065
     Dates: start: 20110521
  6. TACROLIMUS [Interacting]
     Active Substance: TACROLIMUS
     Dosage: 7 MG/DAY
     Route: 065
     Dates: start: 20120107
  7. MYCOPHENOLATE MOFETIL [Suspect]
     Active Substance: MYCOPHENOLATE MOFETIL
     Indication: Immunosuppressant drug therapy
     Dosage: UNK
     Route: 065
  8. PREDNISONE [Suspect]
     Active Substance: PREDNISONE
     Indication: Immunosuppressant drug therapy
     Dosage: UNK
     Route: 065
  9. RIFAMPIN [Interacting]
     Active Substance: RIFAMPIN
     Indication: Lymph node tuberculosis
     Dosage: 600 MG/DAY
     Route: 065

REACTIONS (3)
  - Lymph node tuberculosis [Unknown]
  - Drug level decreased [Unknown]
  - Drug interaction [Unknown]
